FAERS Safety Report 8111653-9 (Version None)
Quarter: 2012Q1

REPORT INFORMATION
  Report Type: 
  Country: None (occurrence: None)
  Receive Date: 20120202
  Receipt Date: 20120202
  Transmission Date: 20120608
  Serious: Yes (Hospitalization)
  Sender: FDA-Public Use
  Company Number: None

PATIENT
  Sex: Female
  Weight: 74.9 kg

DRUGS (10)
  1. CLARITIN [Concomitant]
  2. CLONIDINE HCL [Concomitant]
  3. TAXOTERE [Suspect]
     Indication: SARCOMA
     Dosage: TAXOTERE 74MG IV C1D1
     Dates: start: 20120124
  4. ALIMTA [Suspect]
     Indication: SARCOMA
     Dosage: ALIMTA 920MG IV C1D1
     Dates: start: 20120124
  5. FLUTICACONE PROPIONATE INHAKER [Concomitant]
  6. LISINOPRIL [Concomitant]
  7. OXYCONTIN [Concomitant]
  8. MIRALAX [Concomitant]
  9. COMPAZINE [Concomitant]
  10. OXYCODONE HCL [Concomitant]

REACTIONS (3)
  - LEFT VENTRICULAR DYSFUNCTION [None]
  - HEART RATE IRREGULAR [None]
  - TACHYCARDIA [None]
